FAERS Safety Report 12082557 (Version 1)
Quarter: 2016Q1

REPORT INFORMATION
  Report Type: Spontaneous
  Country: US (occurrence: None)
  Receive Date: 20160212
  Receipt Date: 20160212
  Transmission Date: 20160526
  Serious: Yes (Life-Threatening, Hospitalization, Disabling)
  Sender: FDA-Public Use
  Company Number: None

PATIENT
  Age: 34 Year
  Sex: Female
  Weight: 48.08 kg

DRUGS (7)
  1. OXYCONTIN [Concomitant]
     Active Substance: OXYCODONE HYDROCHLORIDE
  2. FOLIC ACID. [Concomitant]
     Active Substance: FOLIC ACID
  3. NIFEPINE XL [Concomitant]
  4. OPDIVO [Suspect]
     Active Substance: NIVOLUMAB
     Indication: LUNG NEOPLASM MALIGNANT
     Dosage: 3 MG/KG FIRST DOSE INTRAVENOUS
     Route: 042
     Dates: start: 20151228, end: 20151228
  5. GABAPENTIN. [Concomitant]
     Active Substance: GABAPENTIN
  6. XANAX [Concomitant]
     Active Substance: ALPRAZOLAM
  7. ZOFRAN [Concomitant]
     Active Substance: ONDANSETRON HYDROCHLORIDE

REACTIONS (2)
  - Diabetic ketoacidosis [None]
  - Hyperglycaemia [None]

NARRATIVE: CASE EVENT DATE: 20160110
